FAERS Safety Report 25108830 (Version 2)
Quarter: 2025Q2

REPORT INFORMATION
  Report Type: Other
  Country: JP (occurrence: JP)
  Receive Date: 20250322
  Receipt Date: 20250614
  Transmission Date: 20250716
  Serious: Yes (Death)
  Sender: ANI
  Company Number: JP-ANIPHARMA-016088

PATIENT
  Sex: Male

DRUGS (6)
  1. FLUVOXAMINE [Suspect]
     Active Substance: FLUVOXAMINE
     Indication: Panic disorder
  2. RISPERIDONE [Suspect]
     Active Substance: RISPERIDONE
     Indication: Panic disorder
     Route: 048
  3. FLUNITRAZEPAM [Concomitant]
     Active Substance: FLUNITRAZEPAM
     Indication: Panic disorder
  4. ETIZOLAM [Concomitant]
     Active Substance: ETIZOLAM
     Indication: Panic disorder
  5. DIAZEPAM [Concomitant]
     Active Substance: DIAZEPAM
     Indication: Panic disorder
  6. RISPERIDONE [Suspect]
     Active Substance: RISPERIDONE
     Indication: Panic disorder
     Route: 048

REACTIONS (1)
  - Overdose [Fatal]
